FAERS Safety Report 5008324-4 (Version None)
Quarter: 2006Q2

REPORT INFORMATION
  Report Type: 
  Country: None (occurrence: None)
  Receive Date: 20060523
  Receipt Date: 20060419
  Transmission Date: 20061013
  Serious: Yes (Death, Hospitalization)
  Sender: FDA-Public Use
  Company Number: CZ-BRISTOL-MYERS SQUIBB COMPANY-13353719

PATIENT
  Age: 74 Year
  Sex: Male

DRUGS (4)
  1. AMPHOTERICIN B [Suspect]
     Indication: MENINGITIS CRYPTOCOCCAL
     Dosage: START .05MG INTRATHECALLY.  ALSO RECEIVED 50MG/D, INCREASED-}75MG/D,REDUCED-}25MG/D (UNSPEC. DATES)
     Dates: start: 20041207
  2. METHOTREXATE [Concomitant]
     Indication: MENINGITIS CRYPTOCOCCAL
     Route: 037
  3. DEXONA [Concomitant]
     Indication: MENINGITIS CRYPTOCOCCAL
     Route: 037
  4. CYCLOPHOSPHAMIDE [Concomitant]
     Indication: MENINGITIS CRYPTOCOCCAL

REACTIONS (3)
  - DRUG INEFFECTIVE [None]
  - SEPTIC SHOCK [None]
  - THROMBOCYTOPENIA [None]
